FAERS Safety Report 7546800-0 (Version None)
Quarter: 2011Q2

REPORT INFORMATION
  Report Type: 
  Country: None (occurrence: None)
  Receive Date: 20110614
  Receipt Date: 20110530
  Transmission Date: 20111010
  Serious: Yes (Other)
  Sender: FDA-Public Use
  Company Number: SG-ROCHE-781193

PATIENT
  Age: 38 Year
  Sex: Male

DRUGS (12)
  1. DOXORUBICIN HCL [Suspect]
     Route: 065
  2. FLUOROURACIL [Suspect]
     Route: 065
  3. OXALIPLATIN [Concomitant]
  4. BEVACIZUMAB [Suspect]
     Route: 065
  5. DOXORUBICIN HCL [Suspect]
     Route: 065
  6. OXALIPLATIN [Concomitant]
  7. GEFITINIB [Suspect]
     Route: 065
  8. INTERFERON ALFA [Suspect]
     Route: 065
  9. DOXORUBICIN HCL [Suspect]
     Route: 065
  10. CISPLATIN [Suspect]
     Route: 065
  11. BEVACIZUMAB [Suspect]
     Route: 065
  12. CAPECITABINE [Suspect]
     Route: 065

REACTIONS (3)
  - PALMAR-PLANTAR ERYTHRODYSAESTHESIA SYNDROME [None]
  - MUCOSAL INFLAMMATION [None]
  - NEUTROPENIA [None]
